FAERS Safety Report 24626995 (Version 2)
Quarter: 2024Q4

REPORT INFORMATION
  Report Type: Report from Study
  Country: US (occurrence: US)
  Receive Date: 20241115
  Receipt Date: 20241210
  Transmission Date: 20250115
  Serious: Yes (Hospitalization, Other)
  Sender: ALEXION PHARMACEUTICALS
  Company Number: US-AstraZeneca-CH-00744204A

PATIENT

DRUGS (6)
  1. ULTOMIRIS [Suspect]
     Active Substance: RAVULIZUMAB-CWVZ
     Indication: Myasthenia gravis
     Dosage: UNK
     Route: 065
  2. ULTOMIRIS [Suspect]
     Active Substance: RAVULIZUMAB-CWVZ
     Dosage: UNK
     Route: 065
  3. ULTOMIRIS [Suspect]
     Active Substance: RAVULIZUMAB-CWVZ
     Dosage: UNK
     Route: 065
  4. ULTOMIRIS [Suspect]
     Active Substance: RAVULIZUMAB-CWVZ
     Dosage: UNK
     Route: 065
  5. D MANNOSE [Concomitant]
     Dosage: 500 MILLIGRAM, QD
     Route: 065
  6. D MANNOSE [Concomitant]
     Dosage: 500 MILLIGRAM, QD
     Route: 065

REACTIONS (5)
  - Septic shock [Recovered/Resolved]
  - Myasthenia gravis [Unknown]
  - Nephrolithiasis [Unknown]
  - Urethral obstruction [Unknown]
  - Urinary tract infection [Unknown]
